FAERS Safety Report 20566456 (Version 2)
Quarter: 2022Q1

REPORT INFORMATION
  Report Type: Report from Study
  Country: US (occurrence: US)
  Receive Date: 20220308
  Receipt Date: 20220310
  Transmission Date: 20220423
  Serious: Yes (Death, Other)
  Sender: FDA-Public Use
  Company Number: US-BAYER-2020-246121

PATIENT
  Age: 34 Year
  Sex: Male

DRUGS (9)
  1. DIPHENHYDRAMINE HYDROCHLORIDE [Interacting]
     Active Substance: DIPHENHYDRAMINE HYDROCHLORIDE
     Dosage: UNK
  2. MORPHINE SULFATE [Interacting]
     Active Substance: MORPHINE SULFATE
     Dosage: UNK
  3. HYDROCODONE [Interacting]
     Active Substance: HYDROCODONE
     Dosage: UNK
  4. NORDAZEPAM [Interacting]
     Active Substance: NORDAZEPAM
     Dosage: UNK
  5. ETIZOLAM [Interacting]
     Active Substance: ETIZOLAM
     Dosage: UNK
  6. CODEINE [Interacting]
     Active Substance: CODEINE
     Dosage: UNK
  7. CITALOPRAM [Interacting]
     Active Substance: CITALOPRAM HYDROBROMIDE
     Dosage: UNK
  8. ALCOHOL [Suspect]
     Active Substance: ALCOHOL
     Dosage: UNK
  9. METHADONE [Concomitant]
     Active Substance: METHADONE HYDROCHLORIDE
     Indication: Drug withdrawal maintenance therapy
     Dosage: UNK

REACTIONS (2)
  - Toxicity to various agents [Fatal]
  - Drug interaction [Fatal]

NARRATIVE: CASE EVENT DATE: 20180901
